FAERS Safety Report 9169123 (Version 1)
Quarter: 2013Q1

REPORT INFORMATION
  Report Type: Report from Study
  Country: DE (occurrence: DE)
  Receive Date: 20130318
  Receipt Date: 20130318
  Transmission Date: 20140127
  Serious: Yes (Hospitalization, Other)
  Sender: FDA-Public Use
  Company Number: DE-UCBSA-080257

PATIENT
  Age: 49 Year
  Sex: Male

DRUGS (9)
  1. VIMPAT [Suspect]
     Indication: EPILEPSY
     Dosage: DAILY DOSE:200 MG
     Dates: start: 2011
  2. VIMPAT [Suspect]
     Indication: EPILEPSY
     Dosage: DAILY DOSE: 100 MG
     Dates: start: 20110222, end: 2011
  3. CARBAMAZEPINE [Concomitant]
     Indication: EPILEPSY
     Dosage: DAILY DOSE:1800 MG
     Dates: end: 2011
  4. CARBAMAZEPINE [Concomitant]
     Indication: EPILEPSY
     Dosage: DAILY DOSE: 1600 MG
     Dates: start: 2011, end: 2011
  5. ZONISAMIDE [Concomitant]
     Indication: EPILEPSY
     Dosage: DAILY DOSE: 300 MG
     Dates: end: 2011
  6. ZONISAMIDE [Concomitant]
     Indication: EPILEPSY
     Dosage: DAILY DOSE: 400 MG
     Dates: start: 2011, end: 2011
  7. ZONISAMIDE [Concomitant]
     Indication: EPILEPSY
     Dosage: DAILY DOSE: 500 MG
  8. ESLICARBAZEPINE [Concomitant]
     Dosage: DAILY DOSE: 2000 MG
     Dates: start: 2011
  9. ESLICARBAZEPINE [Concomitant]
     Dosage: DAILY DOSE:1200 MG

REACTIONS (2)
  - Grand mal convulsion [Unknown]
  - Convulsion [Unknown]
